FAERS Safety Report 10090170 (Version 2)
Quarter: 2014Q2

REPORT INFORMATION
  Report Type: Report from Study
  Country: US (occurrence: US)
  Receive Date: 20140421
  Receipt Date: 20140421
  Transmission Date: 20141212
  Serious: Yes (Hospitalization)
  Sender: FDA-Public Use
  Company Number: US-GLAXOSMITHKLINE-A0899022B

PATIENT
  Sex: Female
  Weight: 49 kg

DRUGS (5)
  1. LAPATINIB [Suspect]
     Indication: BREAST CANCER
     Dosage: 750MG PER DAY
     Route: 048
     Dates: start: 20101006
  2. DOCETAXEL [Suspect]
     Dosage: 75MGM2 EVERY 3 WEEKS
     Route: 042
     Dates: start: 20101006
  3. CARBOPLATIN [Suspect]
     Indication: BREAST CANCER
     Route: 042
     Dates: start: 20101006
  4. TRASTUZUMAB [Suspect]
     Indication: BREAST CANCER
     Route: 042
     Dates: start: 20101006
  5. CEFUROXIME [Suspect]
     Dosage: 250MG TWICE PER DAY

REACTIONS (8)
  - Neutropenia [Recovered/Resolved]
  - Leukopenia [Recovered/Resolved]
  - International normalised ratio increased [Recovered/Resolved]
  - Fatigue [Recovered/Resolved]
  - Diarrhoea [Recovered/Resolved]
  - Dehydration [Recovered/Resolved]
  - Colitis [Recovered/Resolved]
  - Ileus [Recovered/Resolved]
